FAERS Safety Report 10643481 (Version 2)
Quarter: 2015Q1

REPORT INFORMATION
  Report Type: Report from Study
  Country: US (occurrence: US)
  Receive Date: 20141210
  Receipt Date: 20150211
  Transmission Date: 20150720
  Serious: Yes (Death, Other)
  Sender: FDA-Public Use
  Company Number: US-SA-2014SA169518

PATIENT
  Sex: Male

DRUGS (4)
  1. CAMPATH [Suspect]
     Active Substance: ALEMTUZUMAB
     Route: 065
     Dates: start: 20121005, end: 20121224
  2. CAMPATH [Suspect]
     Active Substance: ALEMTUZUMAB
     Route: 065
     Dates: start: 20141006
  3. OMEPRAZOLE. [Concomitant]
     Active Substance: OMEPRAZOLE
     Indication: GASTROOESOPHAGEAL REFLUX DISEASE
  4. OXYCODONE [Concomitant]
     Active Substance: OXYCODONE
     Dosage: ONE AT A TIME UP TO 4 TABLETS A DAY,

REACTIONS (1)
  - Death [Fatal]
